FAERS Safety Report 6829869-8 (Version None)
Quarter: 2010Q3

REPORT INFORMATION
  Report Type: 
  Country: None (occurrence: None)
  Receive Date: 20100710
  Receipt Date: 20100629
  Transmission Date: 20110219
  Serious: No
  Sender: FDA-Public Use
  Company Number: US-JNJFOC-20100700388

PATIENT
  Sex: Female
  Weight: 87.09 kg

DRUGS (6)
  1. DURAGESIC-100 [Suspect]
     Indication: BACK PAIN
     Route: 062
  2. DURAGESIC-100 [Suspect]
     Route: 062
  3. PLAVIX [Concomitant]
     Indication: ANTICOAGULANT THERAPY
     Route: 048
  4. COREG [Concomitant]
     Indication: CARDIOMYOPATHY
     Route: 048
  5. MAVIK [Concomitant]
     Indication: CARDIOMYOPATHY
     Route: 048
  6. LASIX [Concomitant]
     Indication: SWELLING
     Route: 048

REACTIONS (4)
  - MALAISE [None]
  - POISONING [None]
  - PRODUCT ADHESION ISSUE [None]
  - WRONG TECHNIQUE IN DRUG USAGE PROCESS [None]
